FAERS Safety Report 14690893 (Version 1)
Quarter: 2018Q1

REPORT INFORMATION
  Report Type: Spontaneous
  Country: US (occurrence: US)
  Receive Date: 20180328
  Receipt Date: 20180328
  Transmission Date: 20180509
  Serious: Yes (Death)
  Sender: FDA-Public Use
  Company Number: PHHY2018US048220

PATIENT
  Sex: Female

DRUGS (2)
  1. PHENTERMINE. [Suspect]
     Active Substance: PHENTERMINE
     Indication: PRODUCT USED FOR UNKNOWN INDICATION
     Route: 065
  2. METHAMPHETAMINE [Suspect]
     Active Substance: METHAMPHETAMINE
     Indication: PRODUCT USED FOR UNKNOWN INDICATION
     Route: 065

REACTIONS (14)
  - Coma [Fatal]
  - Hypertension [Fatal]
  - Delirium [Fatal]
  - Coagulopathy [Fatal]
  - Leukocytosis [Fatal]
  - Tachycardia [Fatal]
  - Depressed level of consciousness [Fatal]
  - Acute lung injury [Fatal]
  - Thrombocytopenia [Fatal]
  - Rhabdomyolysis [Fatal]
  - Pneumonia aspiration [Fatal]
  - Hypotension [Fatal]
  - Metabolic acidosis [Fatal]
  - Acute kidney injury [Fatal]
